FAERS Safety Report 9533467 (Version 1)
Quarter: 2013Q3

REPORT INFORMATION
  Report Type: Spontaneous
  Country: US (occurrence: US)
  Receive Date: 20130918
  Receipt Date: 20130918
  Transmission Date: 20140515
  Serious: Yes (Hospitalization)
  Sender: FDA-Public Use
  Company Number: US-JNJFOC-20130906255

PATIENT
  Sex: Female

DRUGS (8)
  1. INVOKANA [Suspect]
     Indication: PRODUCT USED FOR UNKNOWN INDICATION
     Route: 048
  2. TRADJENTA [Concomitant]
  3. SPIRIVA [Concomitant]
  4. ADVAIR [Concomitant]
  5. CYMBALTA [Concomitant]
  6. LOSARTAN [Concomitant]
  7. ATENOLOL [Concomitant]
  8. STATIN MEDICATION [Concomitant]

REACTIONS (2)
  - Muscular weakness [Not Recovered/Not Resolved]
  - Dysstasia [Not Recovered/Not Resolved]
